FAERS Safety Report 14202222 (Version 1)
Quarter: 2017Q4

REPORT INFORMATION
  Report Type: Spontaneous
  Country: JP (occurrence: JP)
  Receive Date: 20171117
  Receipt Date: 20171117
  Transmission Date: 20180321
  Serious: Yes (Other)
  Sender: FDA-Public Use
  Company Number: PHHY2017JP160885

PATIENT
  Age: 19 Year
  Sex: Female

DRUGS (4)
  1. CICLOSPORIN [Suspect]
     Active Substance: CYCLOSPORINE
     Indication: CORD BLOOD TRANSPLANT THERAPY
     Route: 065
  2. MYCOPHENOLIC ACID. [Suspect]
     Active Substance: MYCOPHENOLIC ACID
     Indication: IMMUNOSUPPRESSANT DRUG THERAPY
  3. CICLOSPORIN [Suspect]
     Active Substance: CYCLOSPORINE
     Indication: IMMUNOSUPPRESSANT DRUG THERAPY
  4. MYCOPHENOLIC ACID. [Suspect]
     Active Substance: MYCOPHENOLIC ACID
     Indication: CORD BLOOD TRANSPLANT THERAPY
     Route: 065

REACTIONS (5)
  - Abdominal pain [Unknown]
  - Product use in unapproved indication [Unknown]
  - Cytomegalovirus gastrointestinal infection [Unknown]
  - Throat irritation [Unknown]
  - Diarrhoea [Unknown]
